FAERS Safety Report 4786639-2 (Version None)
Quarter: 2005Q4

REPORT INFORMATION
  Report Type: 
  Country: None (occurrence: None)
  Receive Date: 20051003
  Receipt Date: 20051003
  Transmission Date: 20060501
  Serious: Yes (Disabling)
  Sender: FDA-Public Use
  Company Number: None

PATIENT
  Age: 43 Year
  Sex: Female
  Weight: 83.9154 kg

DRUGS (3)
  1. LEVAQUIN [Suspect]
     Indication: SINUSITIS
     Dosage: 500MG QD PO
     Route: 048
     Dates: start: 20050902, end: 20050910
  2. ACETAMINOPHEN [Concomitant]
  3. IBUPROFEN [Concomitant]

REACTIONS (6)
  - ANXIETY [None]
  - COORDINATION ABNORMAL [None]
  - EAR PAIN [None]
  - FACIAL PAIN [None]
  - MUSCULAR WEAKNESS [None]
  - TREMOR [None]
